FAERS Safety Report 9268292 (Version 2)
Quarter: 2014Q4

REPORT INFORMATION
  Report Type: Report from Study
  Country: US (occurrence: US)
  Receive Date: 20130502
  Receipt Date: 20141218
  Transmission Date: 20150529
  Serious: No
  Sender: FDA-Public Use
  Company Number: US-ALEXION-A201202151

PATIENT

DRUGS (1)
  1. SOLIRIS [Suspect]
     Active Substance: ECULIZUMAB
     Indication: PAROXYSMAL NOCTURNAL HAEMOGLOBINURIA
     Dosage: UNK
     Route: 042

REACTIONS (7)
  - Haemoglobin decreased [Unknown]
  - Dental caries [Recovered/Resolved]
  - Vomiting [Unknown]
  - Blood lactate dehydrogenase increased [Not Recovered/Not Resolved]
  - Malaise [Unknown]
  - Chromaturia [Unknown]
  - Therapeutic response decreased [Unknown]
